FAERS Safety Report 4897601-3 (Version None)
Quarter: 2006Q1

REPORT INFORMATION
  Report Type: 
  Country: None (occurrence: None)
  Receive Date: 20060130
  Receipt Date: 20060130
  Transmission Date: 20060701
  Serious: Yes (Hospitalization)
  Sender: FDA-Public Use
  Company Number: None

PATIENT
  Sex: Female
  Weight: 58.9676 kg

DRUGS (1)
  1. LAMICTAL [Suspect]
     Indication: CONVULSION
     Dosage: 75MG-AM 50MG-PM BID PO
     Route: 048
     Dates: start: 20051116, end: 20051213

REACTIONS (3)
  - DIFFICULTY IN WALKING [None]
  - HEPATITIS [None]
  - PYREXIA [None]
